FAERS Safety Report 12677857 (Version 1)
Quarter: 2016Q3

REPORT INFORMATION
  Report Type: Spontaneous
  Country: JP (occurrence: JP)
  Receive Date: 20160823
  Receipt Date: 20160823
  Transmission Date: 20161109
  Serious: Yes (Death, Other)
  Sender: FDA-Public Use
  Company Number: JP-009507513-1608JPN001891

PATIENT
  Age: 32 Year
  Sex: Male

DRUGS (1)
  1. CUBICIN [Suspect]
     Active Substance: DAPTOMYCIN
     Dosage: 6 MG/KG, TID
     Route: 041

REACTIONS (4)
  - Death [Fatal]
  - Prescribed overdose [Unknown]
  - Blood creatine phosphokinase increased [Unknown]
  - Inappropriate schedule of drug administration [Unknown]
